FAERS Safety Report 8332352-4 (Version None)
Quarter: 2012Q1

REPORT INFORMATION
  Report Type: 
  Country: None (occurrence: None)
  Receive Date: 20120315
  Receipt Date: 20110523
  Transmission Date: 20120608
  Serious: No
  Sender: FDA-Public Use
  Company Number: PHHY2011US44404

PATIENT
  Age: 41 Year
  Sex: Female

DRUGS (8)
  1. SEROQUEL [Concomitant]
  2. GILENYA [Suspect]
     Indication: MULTIPLE SCLEROSIS
     Dosage: 0.5 MG, , DAILY, ORAL
     Route: 048
     Dates: start: 20110330
  3. TOPIRAMATE [Concomitant]
  4. NORETHINDRONE [Concomitant]
  5. PLAQUENIL [Concomitant]
  6. SUMATRIPTAN SUCCINATE (IMITREX) [Concomitant]
  7. BACLOFEN [Concomitant]
  8. NAMENDA [Concomitant]

REACTIONS (3)
  - ORAL PAIN [None]
  - TONGUE EXFOLIATION [None]
  - MOUTH ULCERATION [None]
